FAERS Safety Report 9571150 (Version 3)
Quarter: 2014Q2

REPORT INFORMATION
  Report Type: Report from Study
  Country: AU (occurrence: AU)
  Receive Date: 20131001
  Receipt Date: 20140428
  Transmission Date: 20141212
  Serious: Yes (Other)
  Sender: FDA-Public Use
  Company Number: AU-ROCHE-1277677

PATIENT
  Age: 58 Year
  Sex: Female

DRUGS (12)
  1. ACTEMRA [Suspect]
     Indication: RHEUMATOID ARTHRITIS
     Route: 042
     Dates: start: 20100609
  2. WARFARIN [Concomitant]
     Indication: PULMONARY EMBOLISM
     Route: 048
  3. PROBITOR (AUSTRALIA) [Concomitant]
     Indication: GASTROOESOPHAGEAL REFLUX DISEASE
     Route: 048
  4. PERIACTIN [Concomitant]
     Route: 048
  5. CRESTOR [Concomitant]
  6. ENDEP [Concomitant]
  7. QUINATE (AUSTRALIA) [Concomitant]
  8. MINIPRES [Concomitant]
  9. NOTEN [Concomitant]
  10. TRAMAL [Concomitant]
  11. TEGRETOL [Concomitant]
  12. ENDONE [Concomitant]

REACTIONS (2)
  - Hiatus hernia [Recovered/Resolved]
  - Skin disorder [Unknown]
